FAERS Safety Report 10660715 (Version 2)
Quarter: 2015Q1

REPORT INFORMATION
  Report Type: Spontaneous
  Country: JP (occurrence: JP)
  Receive Date: 20141217
  Receipt Date: 20150327
  Transmission Date: 20150720
  Serious: Yes (Death)
  Sender: FDA-Public Use
  Company Number: JP-MYLANLABS-2014M1014600

PATIENT

DRUGS (4)
  1. PREDNISOLONE TABLETS 1^HOEI^ [Suspect]
     Active Substance: PREDNISOLONE
     Dosage: 1 CYCLE: 10MG DAILY (EVERY 21 DAYS)
     Route: 048
  2. DEXAMETHASONE. [Concomitant]
     Active Substance: DEXAMETHASONE
     Indication: PROSTATE CANCER
     Dosage: 8MG
     Route: 042
  3. DOCETAXEL. [Suspect]
     Active Substance: DOCETAXEL
     Indication: PROSTATE CANCER
     Dosage: 1 CYCLE: 70 MG/M2 ON DAY 2 (EVERY 21 DAYS)
     Route: 041
  4. ESTRAMUSTINE [Suspect]
     Active Substance: ESTRAMUSTINE
     Indication: PROSTATE CANCER
     Dosage: 1 CYCLE: 560MG ON DAYS 1-5 AND DAYS 8-12 (EVERY 21 DAYS)
     Route: 048

REACTIONS (1)
  - Febrile neutropenia [Fatal]
